FAERS Safety Report 6402727-9 (Version None)
Quarter: 2009Q4

REPORT INFORMATION
  Report Type: 
  Country: None (occurrence: None)
  Receive Date: 20091013
  Receipt Date: 20090929
  Transmission Date: 20100525
  Serious: Yes (Hospitalization)
  Sender: FDA-Public Use
  Company Number: 235416K09USA

PATIENT
  Age: 25 Year
  Sex: Female
  Weight: 104 kg

DRUGS (10)
  1. REBIF [Suspect]
     Indication: MULTIPLE SCLEROSIS
     Dosage: SEE IMAGE, SUBCUTANEOUS
     Route: 058
     Dates: start: 20090410, end: 20090101
  2. REBIF [Suspect]
     Indication: MULTIPLE SCLEROSIS
     Dosage: SEE IMAGE, SUBCUTANEOUS
     Route: 058
     Dates: start: 20090501, end: 20090501
  3. REBIF [Suspect]
     Indication: MULTIPLE SCLEROSIS
     Dosage: SEE IMAGE, SUBCUTANEOUS
     Route: 058
     Dates: start: 20090501
  4. ASPIRIN [Suspect]
     Indication: RHEUMATOID ARTHRITIS
     Dosage: 500 MG, 10 IN 1 DAYS
     Dates: start: 20090201
  5. DULCOLAX [Concomitant]
  6. MULTIVITAMIN [Concomitant]
  7. VITAMIN B12 [Concomitant]
  8. PREDNISONE TAB [Concomitant]
  9. VITAMIN D [Concomitant]
  10. VITAMIN E [Concomitant]

REACTIONS (7)
  - CHILLS [None]
  - HAEMOGLOBIN DECREASED [None]
  - HAEMORRHOIDAL HAEMORRHAGE [None]
  - HEADACHE [None]
  - INFLUENZA LIKE ILLNESS [None]
  - INJECTION SITE HAEMATOMA [None]
  - PAIN [None]
